FAERS Safety Report 21923591 (Version 2)
Quarter: 2023Q1

REPORT INFORMATION
  Report Type: Spontaneous
  Country: PR (occurrence: PR)
  Receive Date: 20230130
  Receipt Date: 20230221
  Transmission Date: 20230417
  Serious: No
  Sender: FDA-Public Use
  Company Number: PR-JNJFOC-20230147399

PATIENT
  Age: 82 Year
  Sex: Male

DRUGS (3)
  1. ERLEADA [Suspect]
     Active Substance: APALUTAMIDE
     Indication: Prostate cancer
     Route: 048
  2. RETACRIT [Concomitant]
     Active Substance: EPOETIN ALFA-EPBX
  3. PANADOL [Concomitant]
     Active Substance: ACETAMINOPHEN
     Indication: Arthritis

REACTIONS (5)
  - Fatigue [Not Recovered/Not Resolved]
  - Pain [Unknown]
  - Haemoglobin decreased [Not Recovered/Not Resolved]
  - Arthralgia [Recovering/Resolving]
  - Somnolence [Unknown]
